FAERS Safety Report 24580097 (Version 10)
Quarter: 2025Q4

REPORT INFORMATION
  Report Type: Report from Study
  Country: CA (occurrence: CA)
  Receive Date: 20241105
  Receipt Date: 20251217
  Transmission Date: 20260117
  Serious: Yes (Hospitalization, Other)
  Sender: PFIZER
  Company Number: CA-PFIZER INC-202400221987

PATIENT
  Age: 66 Year
  Sex: Male

DRUGS (7)
  1. ABRILADA [Suspect]
     Active Substance: ADALIMUMAB-AFZB
     Indication: Crohn^s disease
     Dosage: 40 MG, WEEKLY
     Route: 058
     Dates: start: 202401
  2. ABRILADA [Suspect]
     Active Substance: ADALIMUMAB-AFZB
     Dosage: 1 DF, 160MG WEEK 0, 80MG WEEK 2THEN 40MG Q 2 WEEKS  (Q1WEEK INJECTION, ALTERNATING 40MG AND 80MG)
     Route: 058
     Dates: start: 20240527, end: 2024
  3. ABRILADA [Suspect]
     Active Substance: ADALIMUMAB-AFZB
     Dosage: 1 DF, 160MG WEEK 0, 80MG WEEK 2THEN 40MG Q 2 WEEKS
     Route: 058
     Dates: start: 20240720
  4. ABRILADA [Suspect]
     Active Substance: ADALIMUMAB-AFZB
     Dosage: 40 MG, WEEKLY
     Route: 058
     Dates: start: 2024
  5. ABRILADA [Suspect]
     Active Substance: ADALIMUMAB-AFZB
     Dosage: 40 MG, 2X/WEEK
     Route: 058
     Dates: start: 20250201, end: 2025
  6. ABRILADA [Suspect]
     Active Substance: ADALIMUMAB-AFZB
     Dosage: 80 MG, WEEKLY
     Route: 058
     Dates: start: 2025
  7. ABRILADA [Suspect]
     Active Substance: ADALIMUMAB-AFZB
     Dosage: 1 DF, WEEKLY (80 MG ALTERNATING WITH 40 MG Q WEEK)
     Route: 058
     Dates: start: 2025

REACTIONS (15)
  - Calculus bladder [Not Recovered/Not Resolved]
  - Infection [Unknown]
  - Prostatectomy [Unknown]
  - Drug effect less than expected [Recovered/Resolved]
  - Drug ineffective [Unknown]
  - Drug level decreased [Unknown]
  - Drug level above therapeutic [Unknown]
  - Impaired healing [Unknown]
  - Malaise [Unknown]
  - Disease recurrence [Not Recovered/Not Resolved]
  - Condition aggravated [Recovering/Resolving]
  - Vitamin B complex deficiency [Unknown]
  - Faecal calprotectin increased [Unknown]
  - Off label use [Unknown]
  - Off label use [Unknown]

NARRATIVE: CASE EVENT DATE: 20240101
